FAERS Safety Report 25190643 (Version 1)
Quarter: 2025Q2

REPORT INFORMATION
  Report Type: Spontaneous
  Country: US (occurrence: US)
  Receive Date: 20250411
  Receipt Date: 20250411
  Transmission Date: 20250717
  Serious: No
  Sender: INCYTE
  Company Number: US-EVENT-002263

PATIENT
  Age: 65 Year

DRUGS (1)
  1. OPZELURA [Suspect]
     Active Substance: RUXOLITINIB PHOSPHATE
     Indication: Lichen planopilaris
     Dosage: UNK, QD
     Route: 065

REACTIONS (2)
  - Alopecia [Unknown]
  - Off label use [Unknown]
